FAERS Safety Report 5063431-5 (Version None)
Quarter: 2006Q3

REPORT INFORMATION
  Report Type: 
  Country: None (occurrence: None)
  Receive Date: 20060727
  Receipt Date: 20031222
  Transmission Date: 20061208
  Serious: Yes (Death)
  Sender: FDA-Public Use
  Company Number: US-GLAXOSMITHKLINE-A0444135A

PATIENT
  Age: 14 Year
  Sex: Male

DRUGS (2)
  1. PAXIL [Suspect]
     Indication: DEPRESSION
     Route: 048
     Dates: start: 20010112, end: 20010314
  2. PROTONIX [Concomitant]

REACTIONS (15)
  - ABNORMAL BEHAVIOUR [None]
  - AGITATION [None]
  - AKATHISIA [None]
  - ANXIETY [None]
  - COMPLETED SUICIDE [None]
  - DEPERSONALISATION [None]
  - DRUG INEFFECTIVE [None]
  - DRUG SCREEN POSITIVE [None]
  - FLAT AFFECT [None]
  - INJURY ASPHYXIATION [None]
  - INSOMNIA [None]
  - SOCIAL AVOIDANT BEHAVIOUR [None]
  - SUICIDAL IDEATION [None]
  - TREMOR [None]
  - VENTRICULAR TACHYCARDIA [None]
